FAERS Safety Report 8321566-5 (Version None)
Quarter: 2012Q2

REPORT INFORMATION
  Report Type: 
  Country: None (occurrence: None)
  Receive Date: 20120430
  Receipt Date: 20120424
  Transmission Date: 20120825
  Serious: No
  Sender: FDA-Public Use
  Company Number: US-PFIZER INC-2012101567

PATIENT
  Sex: Male

DRUGS (2)
  1. IBUPROFEN (ADVIL) [Suspect]
     Indication: SINUSITIS
     Dosage: 200 MG, 2X/DAY
     Dates: start: 20120401
  2. IBUPROFEN (ADVIL) [Suspect]
     Indication: ARTHRALGIA

REACTIONS (1)
  - EPISTAXIS [None]
